FAERS Safety Report 17588178 (Version 2)
Quarter: 2020Q3

REPORT INFORMATION
  Report Type: Spontaneous
  Country: US (occurrence: US)
  Receive Date: 20200327
  Receipt Date: 20200825
  Transmission Date: 20201102
  Serious: No
  Sender: FDA-Public Use
  Company Number: US-ELI_LILLY_AND_COMPANY-US202003001317

PATIENT
  Age: 40 Year
  Sex: Female

DRUGS (1)
  1. BAQSIMI [Suspect]
     Active Substance: GLUCAGON
     Indication: HYPOGLYCAEMIA
     Dosage: 3 MG, SINGLE
     Route: 065

REACTIONS (5)
  - Chronic sinusitis [Not Recovered/Not Resolved]
  - Headache [Unknown]
  - Nausea [Unknown]
  - Nasal congestion [Unknown]
  - Facial pain [Unknown]
